FAERS Safety Report 6710155-1 (Version None)
Quarter: 2010Q2

REPORT INFORMATION
  Report Type: 
  Country: None (occurrence: None)
  Receive Date: 20100504
  Receipt Date: 20100426
  Transmission Date: 20101027
  Serious: Yes (Hospitalization)
  Sender: FDA-Public Use
  Company Number: JP-BRISTOL-MYERS SQUIBB COMPANY-14990659

PATIENT
  Age: 75 Year
  Sex: Female
  Weight: 57 kg

DRUGS (8)
  1. CIBENOL TABS [Suspect]
     Indication: ATRIAL FIBRILLATION
     Route: 048
     Dates: start: 20090801, end: 20100209
  2. WARFARIN POTASSIUM [Suspect]
     Indication: ATRIAL FIBRILLATION
     Dosage: TABS;UID/QD
     Route: 048
     Dates: start: 20090801, end: 20100209
  3. THYRADIN S [Suspect]
     Indication: HYPOTHYROIDISM
     Dosage: TABS
     Dates: start: 19950101, end: 20100226
  4. TAKEPRON [Suspect]
     Indication: GASTRIC ULCER
     Dosage: TABS
     Dates: start: 20050101, end: 20100212
  5. LIVALO [Suspect]
     Indication: HYPERLIPIDAEMIA
     Dosage: TABS
     Dates: start: 20040101, end: 20100209
  6. VITAMEDIN [Suspect]
     Indication: NEURALGIA
     Dates: start: 20060101, end: 20100209
  7. AMOBAN [Suspect]
     Indication: INSOMNIA
     Dosage: TABS
     Dates: start: 20091101, end: 20100226
  8. JUVELA N [Suspect]
     Indication: HYPERLIPIDAEMIA
     Dosage: TABS, TILL 26-FEB-2010 AND RESUMED ON 09-MAR-2010

REACTIONS (1)
  - HEPATIC FUNCTION ABNORMAL [None]
